FAERS Safety Report 18963759 (Version 3)
Quarter: 2021Q1

REPORT INFORMATION
  Report Type: Report from Study
  Country: JP (occurrence: JP)
  Receive Date: 20210303
  Receipt Date: 20210317
  Transmission Date: 20210420
  Serious: Yes (Hospitalization)
  Sender: FDA-Public Use
  Company Number: JP-BRISTOL-MYERS SQUIBB COMPANY-BMS-2021-020144

PATIENT
  Age: 65 Year
  Sex: Female
  Weight: 44 kg

DRUGS (20)
  1. OXYCODONE [Concomitant]
     Active Substance: OXYCODONE
     Indication: CANCER PAIN
     Dosage: 5 MILLIGRAM, Q12H
     Route: 048
     Dates: end: 20210224
  2. PRIMPERAN [Concomitant]
     Active Substance: METOCLOPRAMIDE HYDROCHLORIDE
     Dosage: 5 MILLIGRAM, Q8H
     Route: 048
     Dates: start: 20210302
  3. BMS?986310. [Suspect]
     Active Substance: BMS-986310
     Indication: METASTATIC NEOPLASM
     Dosage: 40 MILLIGRAM, QD
     Route: 048
     Dates: start: 20210118
  4. NIVOLUMAB [Suspect]
     Active Substance: NIVOLUMAB
     Indication: METASTATIC NEOPLASM
     Dosage: 480 MILLIGRAM, Q4WK
     Route: 041
     Dates: start: 20210118
  5. OXYCODONE [Concomitant]
     Active Substance: OXYCODONE
     Dosage: 5 MILLIGRAM, Q12H
     Route: 048
     Dates: start: 20210302
  6. TAKECAB [Concomitant]
     Active Substance: VONOPRAZAN FUMARATE
     Indication: GASTROOESOPHAGEAL REFLUX DISEASE
     Dosage: 20 MILLIGRAM, QD
     Route: 048
     Dates: end: 20210224
  7. TAKECAB [Concomitant]
     Active Substance: VONOPRAZAN FUMARATE
     Dosage: 20 MILLIGRAM, QD
     Route: 048
     Dates: start: 20210302
  8. METEBANYL [Concomitant]
     Indication: COUGH
     Dosage: 2 MILLIGRAM, PRN
     Route: 048
     Dates: end: 20210224
  9. CALONAL [Concomitant]
     Active Substance: ACETAMINOPHEN
     Indication: CANCER PAIN
     Dosage: 500 MILLIGRAM, PRN
     Route: 048
     Dates: end: 20210224
  10. CALONAL [Concomitant]
     Active Substance: ACETAMINOPHEN
     Dosage: 500 MILLIGRAM, PRN
     Route: 048
     Dates: start: 20210302
  11. PRIMPERAN [Concomitant]
     Active Substance: METOCLOPRAMIDE HYDROCHLORIDE
     Indication: GASTROINTESTINAL MOTILITY DISORDER
     Dosage: 5 MILLIGRAM, Q8H
     Route: 048
     Dates: end: 20210224
  12. MAGMITT [Concomitant]
     Active Substance: MAGNESIUM OXIDE
     Indication: CONSTIPATION
     Dosage: 250 MILLIGRAM, Q8H
     Route: 048
     Dates: end: 20210224
  13. SYMPROIC [Concomitant]
     Active Substance: NALDEMEDINE
     Indication: CONSTIPATION
     Dosage: 0.2 MILLIGRAM, QD
     Route: 048
     Dates: end: 20210224
  14. SYMPROIC [Concomitant]
     Active Substance: NALDEMEDINE
     Dosage: 0.2 MILLIGRAM, QD
     Route: 048
     Dates: start: 20210302
  15. GASTROM [Concomitant]
     Active Substance: ECABET SODIUM
     Dosage: 1.5 GRAM, Q12H
     Route: 048
     Dates: start: 20210302
  16. SENNOSIDE A+B [Concomitant]
     Active Substance: SENNOSIDES A AND B
     Indication: CONSTIPATION
     Dosage: 12 MILLIGRAM, PRN
     Route: 048
     Dates: end: 20210224
  17. SENNOSIDE A+B [Concomitant]
     Active Substance: SENNOSIDES A AND B
     Dosage: 12 MILLIGRAM, PRN
     Route: 048
     Dates: start: 20210302
  18. GASTROM [Concomitant]
     Active Substance: ECABET SODIUM
     Indication: GASTROINTESTINAL MOTILITY DISORDER
     Dosage: 1.5 GRAM, Q12H
     Route: 048
     Dates: end: 20210224
  19. MAGMITT [Concomitant]
     Active Substance: MAGNESIUM OXIDE
     Dosage: 250 MILLIGRAM, Q8H
     Route: 048
     Dates: start: 20210302
  20. METEBANYL [Concomitant]
     Dosage: 2 MILLIGRAM, PRN
     Route: 048
     Dates: start: 20210302

REACTIONS (1)
  - Anaemia [Recovered/Resolved]

NARRATIVE: CASE EVENT DATE: 20210219
